FAERS Safety Report 21692476 (Version 4)
Quarter: 2022Q4

REPORT INFORMATION
  Report Type: Other
  Country: GB (occurrence: GB)
  Receive Date: 20221207
  Receipt Date: 20221222
  Transmission Date: 20230112
  Serious: Yes (Other)
  Sender: FDA-Public Use
  Company Number: None

PATIENT
  Age: 73 Year
  Sex: Female
  Weight: 50 kg

DRUGS (100)
  1. SERTRALINE [Suspect]
     Active Substance: SERTRALINE HYDROCHLORIDE
     Indication: Product used for unknown indication
     Dosage: 50 MILLIGRAM, QD (EVERY MORNING)
     Route: 065
  2. SERTRALINE [Suspect]
     Active Substance: SERTRALINE HYDROCHLORIDE
     Dosage: 50 MILLIGRAM, QD
     Route: 042
     Dates: start: 20171103, end: 20171106
  3. RAMIPRIL [Suspect]
     Active Substance: RAMIPRIL
     Indication: Product used for unknown indication
     Dosage: 10 MILLIGRAM, QD (EVERY MORNING)
     Route: 065
  4. RAMIPRIL [Suspect]
     Active Substance: RAMIPRIL
     Dosage: 10 MILLIGRAM, QD (EVERY MORNING)
     Route: 048
  5. METOCLOPRAMIDE [Suspect]
     Active Substance: METOCLOPRAMIDE
     Indication: Product used for unknown indication
     Dosage: 10 MILLIGRAM, PRN
     Route: 065
  6. METOCLOPRAMIDE [Suspect]
     Active Substance: METOCLOPRAMIDE
     Dosage: 20 MILLIGRAM, QD
     Route: 065
  7. METOCLOPRAMIDE [Suspect]
     Active Substance: METOCLOPRAMIDE
     Dosage: 10 MILLIGRAM, PRN
     Route: 065
  8. ALLOPURINOL [Suspect]
     Active Substance: ALLOPURINOL
     Indication: Product used for unknown indication
     Dosage: 30 MILLIGRAM, QD
     Route: 065
     Dates: start: 20171104, end: 20171120
  9. ALLOPURINOL [Suspect]
     Active Substance: ALLOPURINOL
     Dosage: 300 MILLIGRAM (DAILY)
     Route: 065
     Dates: start: 20171104, end: 20171120
  10. ALLOPURINOL [Suspect]
     Active Substance: ALLOPURINOL
     Dosage: 300 MILLIGRAM, QD FOR 32 DAYS
     Route: 065
     Dates: start: 20171120
  11. ALLOPURINOL [Suspect]
     Active Substance: ALLOPURINOL
     Dosage: 30 MILLIGRAM, QD
     Route: 065
     Dates: start: 20171120
  12. ALLOPURINOL [Suspect]
     Active Substance: ALLOPURINOL
     Dosage: 300 MILLIGRAM, QD
     Route: 065
  13. ALLOPURINOL [Suspect]
     Active Substance: ALLOPURINOL
     Dosage: 30 MILLIGRAM, QD
     Route: 065
  14. ALLOPURINOL [Suspect]
     Active Substance: ALLOPURINOL
     Dosage: 120 MILLIGRAM FOR 32 DAYS
     Route: 065
  15. DEXAMETHASONE [Suspect]
     Active Substance: DEXAMETHASONE
     Indication: Product used for unknown indication
     Dosage: 20 MILLIGRAM, QD
     Route: 065
     Dates: start: 20171102, end: 20171106
  16. DEXAMETHASONE [Suspect]
     Active Substance: DEXAMETHASONE
     Dosage: 20 MILLIGRAM, QD
     Route: 065
  17. DEXAMETHASONE [Suspect]
     Active Substance: DEXAMETHASONE
     Dosage: 100 MILLIGRAM
     Route: 065
  18. DEXAMETHASONE [Suspect]
     Active Substance: DEXAMETHASONE
     Dosage: 200 MILLIGRAM FOR 5 DAYS
     Route: 065
  19. FENTANYL [Suspect]
     Active Substance: FENTANYL
     Indication: Product used for unknown indication
     Dosage: 12 MICROGRAM (SOLUTION FOR INJECTION)
     Route: 065
     Dates: start: 20171108
  20. FENTANYL [Suspect]
     Active Substance: FENTANYL
     Dosage: 12 MILLIGRAM EVERY 1 HR
     Route: 062
     Dates: start: 20171108
  21. FENTANYL [Suspect]
     Active Substance: FENTANYL
     Dosage: 12 MICROGRAM
     Route: 055
     Dates: start: 20171108
  22. FENTANYL [Suspect]
     Active Substance: FENTANYL
     Dosage: 1 PER HOURE
     Route: 062
     Dates: start: 20171108
  23. FENTANYL [Suspect]
     Active Substance: FENTANYL
     Dosage: UNK
     Route: 065
     Dates: start: 20171108
  24. MELPHALAN [Suspect]
     Active Substance: MELPHALAN
     Indication: Plasma cell leukaemia
     Dosage: UNK (1 CYCLE)
     Route: 065
  25. MELPHALAN [Suspect]
     Active Substance: MELPHALAN
     Dosage: 14 MILLIGRAM, QD
     Route: 065
     Dates: start: 20171103, end: 20171103
  26. MELPHALAN [Suspect]
     Active Substance: MELPHALAN
     Dosage: 14 MILLIGRAM, QD
     Route: 065
     Dates: start: 20171107, end: 20171110
  27. MELPHALAN [Suspect]
     Active Substance: MELPHALAN
     Dosage: 14 MILLIGRAM 1 CYCLE
     Route: 065
  28. MELPHALAN [Suspect]
     Active Substance: MELPHALAN
     Dosage: 14 MILLIGRAM, QD
     Route: 065
     Dates: start: 20171103, end: 20171106
  29. MELPHALAN [Suspect]
     Active Substance: MELPHALAN
     Dosage: 266 MILLIGRAM FOR 11 DAYS
     Route: 065
  30. MELPHALAN [Suspect]
     Active Substance: MELPHALAN
     Dosage: UNK
     Route: 065
     Dates: start: 20171110, end: 20171114
  31. MELPHALAN [Suspect]
     Active Substance: MELPHALAN
     Dosage: 14 MG, QD
     Route: 065
     Dates: start: 20171106, end: 20171106
  32. MELPHALAN [Suspect]
     Active Substance: MELPHALAN
     Dosage: 14 MG
     Route: 065
     Dates: start: 201711, end: 20171107
  33. MELPHALAN [Suspect]
     Active Substance: MELPHALAN
     Dosage: UNK
     Route: 065
     Dates: start: 20171110, end: 20171110
  34. MELPHALAN [Suspect]
     Active Substance: MELPHALAN
     Dosage: 14 MG, TID
     Route: 065
     Dates: start: 20171103, end: 20171106
  35. MELPHALAN [Suspect]
     Active Substance: MELPHALAN
     Dosage: 14 MG, QD
     Route: 065
     Dates: start: 20171103, end: 20171103
  36. MELPHALAN [Suspect]
     Active Substance: MELPHALAN
     Dosage: 56 MILLIGRAM, QD
     Route: 065
     Dates: start: 20171106, end: 20171106
  37. MELPHALAN [Suspect]
     Active Substance: MELPHALAN
     Dosage: 14 MILLIGRAM, QD
     Route: 065
     Dates: start: 20171107, end: 20171110
  38. MELPHALAN [Suspect]
     Active Substance: MELPHALAN
     Dosage: 42 MILLIGRAM FOR 11 DAYS
     Route: 065
     Dates: start: 20171103, end: 20171106
  39. MELPHALAN [Suspect]
     Active Substance: MELPHALAN
     Dosage: UNK
     Route: 065
     Dates: start: 201711, end: 20171107
  40. PREDNISONE [Suspect]
     Active Substance: PREDNISONE
     Indication: Plasma cell leukaemia
     Dosage: 70 MILLIGRAM, 1 CYCLE
     Route: 065
  41. PREDNISONE [Suspect]
     Active Substance: PREDNISONE
     Dosage: 70 MILLIGRAM, QD
     Route: 065
     Dates: start: 20171103, end: 20171103
  42. PREDNISONE [Suspect]
     Active Substance: PREDNISONE
     Dosage: 70 MILLIGRAM, QD, 1 CYCLE
     Route: 065
     Dates: start: 20171106, end: 20171106
  43. PREDNISONE [Suspect]
     Active Substance: PREDNISONE
     Dosage: 70 MG
     Route: 065
  44. PREDNISONE [Suspect]
     Active Substance: PREDNISONE
     Dosage: UNK
     Route: 065
     Dates: start: 20171106, end: 20171106
  45. SODIUM CHLORIDE [Suspect]
     Active Substance: SODIUM CHLORIDE
     Indication: Medication dilution
     Dosage: UNK (1 CYCLE)
     Route: 042
     Dates: start: 20171103, end: 20171106
  46. SODIUM CHLORIDE [Suspect]
     Active Substance: SODIUM CHLORIDE
     Dosage: 1.3 MG/M2, 1 CYCLE
     Route: 042
     Dates: start: 20171106, end: 20171106
  47. SODIUM CHLORIDE [Suspect]
     Active Substance: SODIUM CHLORIDE
     Dosage: UNK (1 CYCLE)
     Route: 042
     Dates: start: 20171107, end: 201711
  48. SODIUM CHLORIDE [Suspect]
     Active Substance: SODIUM CHLORIDE
     Dosage: UNK
     Route: 042
     Dates: start: 20171110, end: 20171114
  49. SODIUM CHLORIDE [Suspect]
     Active Substance: SODIUM CHLORIDE
     Dosage: (1.3 MG/M2, 1 CYCLE )
     Route: 065
     Dates: start: 20211110, end: 20211110
  50. SODIUM CHLORIDE [Suspect]
     Active Substance: SODIUM CHLORIDE
     Dosage: (1.3 MG/M2, 1 CYCLE )
     Route: 058
     Dates: start: 20171103, end: 20171103
  51. SODIUM CHLORIDE [Suspect]
     Active Substance: SODIUM CHLORIDE
     Dosage: UNK (1 CYCLE)
     Route: 042
     Dates: start: 20171106, end: 20171106
  52. SODIUM CHLORIDE [Suspect]
     Active Substance: SODIUM CHLORIDE
     Dosage: UNK
     Route: 042
     Dates: start: 20171103
  53. SODIUM CHLORIDE [Suspect]
     Active Substance: SODIUM CHLORIDE
     Dosage: UNK, FOR 8 DAYS
     Route: 042
     Dates: start: 20171110, end: 20171114
  54. SODIUM CHLORIDE [Suspect]
     Active Substance: SODIUM CHLORIDE
     Dosage: UNK, FOR 8 DAYS
     Route: 042
  55. SODIUM CHLORIDE [Suspect]
     Active Substance: SODIUM CHLORIDE
     Dosage: UNK, FOR 8 DAYS
     Route: 042
     Dates: start: 20171114, end: 201711
  56. SODIUM CHLORIDE [Suspect]
     Active Substance: SODIUM CHLORIDE
     Dosage: UNK
     Route: 042
     Dates: start: 20171110, end: 20171110
  57. FENTANYL [Suspect]
     Active Substance: FENTANYL
     Indication: Product used for unknown indication
     Dosage: 12 MICROGRAM (TRANSDERMAL PATCH)(IN EVERY 1 HOUR)
     Route: 062
     Dates: start: 20171108
  58. FENTANYL [Suspect]
     Active Substance: FENTANYL
     Dosage: 12 MICROGRAM (SOLUTION FOR INJECTION)
     Dates: start: 20171108
  59. VELCADE [Suspect]
     Active Substance: BORTEZOMIB
     Indication: Plasma cell leukaemia
     Dosage: 1.8 MILLIGRAM
     Route: 058
  60. VELCADE [Suspect]
     Active Substance: BORTEZOMIB
     Dosage: 1.3 MILLIGRAM/SQ. METER (1 CYCLE)
     Route: 058
     Dates: start: 20171103, end: 20171103
  61. VELCADE [Suspect]
     Active Substance: BORTEZOMIB
     Dosage: 1.3 MILLIGRAM/SQ. METER 1 CYCLE
     Route: 058
     Dates: start: 20171106, end: 20171106
  62. VELCADE [Suspect]
     Active Substance: BORTEZOMIB
     Dosage: 1.3 MILLIGRAM/SQ. METER 1 CYCLE
     Route: 058
     Dates: start: 20171110, end: 20171114
  63. VELCADE [Suspect]
     Active Substance: BORTEZOMIB
     Dosage: 1.8 MILLIGRAM
     Route: 058
     Dates: start: 20211107, end: 202111
  64. VELCADE [Suspect]
     Active Substance: BORTEZOMIB
     Dosage: 1.3 MILLIGRAM/SQ. METER
     Route: 058
     Dates: start: 20171110, end: 20171110
  65. VELCADE [Suspect]
     Active Substance: BORTEZOMIB
     Dosage: 1.8 MILLIGRAM
     Route: 058
     Dates: start: 20211110, end: 20211114
  66. VELCADE [Suspect]
     Active Substance: BORTEZOMIB
     Dosage: 1.3 MILLIGRAM/SQ. METER, 1 CYCLE
     Route: 058
  67. VELCADE [Suspect]
     Active Substance: BORTEZOMIB
     Dosage: 1.8 MILLIGRAM/SQ. METER, 1 CYCLE
     Route: 065
  68. VELCADE [Suspect]
     Active Substance: BORTEZOMIB
     Dosage: 1.8 MILLIGRAM
     Route: 058
     Dates: start: 20171103, end: 20171103
  69. VELCADE [Suspect]
     Active Substance: BORTEZOMIB
     Dosage: 2 MILLIGRAM/SQ. METER (1 CYCLE)
     Route: 058
     Dates: start: 20171103, end: 20171103
  70. VELCADE [Suspect]
     Active Substance: BORTEZOMIB
     Dosage: 2 MILLIGRAM/SQ. METER (1 CYCLE)
     Route: 058
     Dates: start: 20171107, end: 201711
  71. VELCADE [Suspect]
     Active Substance: BORTEZOMIB
     Dosage: 1.8 MILLIGRAM
     Route: 058
     Dates: start: 20171107, end: 201711
  72. VELCADE [Suspect]
     Active Substance: BORTEZOMIB
     Dosage: 1.8 MILLIGRAM
     Route: 058
     Dates: start: 20171110, end: 20171114
  73. VELCADE [Suspect]
     Active Substance: BORTEZOMIB
     Dosage: 1.3 MILLIGRAM/SQ. METER 1 CYCLE
     Route: 058
     Dates: start: 20171106, end: 20171106
  74. VELCADE [Suspect]
     Active Substance: BORTEZOMIB
     Dosage: 1.3 MILLIGRAM/SQ. METER (1 CYCLE)
     Route: 058
     Dates: start: 20171103, end: 20171103
  75. VELCADE [Suspect]
     Active Substance: BORTEZOMIB
     Dosage: 1.3 MILLIGRAM/SQ. METER, 1 CYCLE
     Route: 058
     Dates: start: 20171110, end: 20171110
  76. VELCADE [Suspect]
     Active Substance: BORTEZOMIB
     Dosage: 1.8 MILLIGRAM
     Route: 058
     Dates: start: 20171110, end: 20171114
  77. VELCADE [Suspect]
     Active Substance: BORTEZOMIB
     Dosage: UNK, 2 MG/M2
     Route: 058
  78. BENDROFLUMETHIAZIDE [Suspect]
     Active Substance: BENDROFLUMETHIAZIDE
     Indication: Product used for unknown indication
     Dosage: 2.5 MILLIGRAM, QD
     Route: 065
     Dates: start: 20171107, end: 201711
  79. BENDROFLUMETHIAZIDE [Suspect]
     Active Substance: BENDROFLUMETHIAZIDE
     Dosage: 2 MILLIGRAM, QD
     Route: 065
     Dates: start: 20171103, end: 20171103
  80. BENDROFLUMETHIAZIDE [Suspect]
     Active Substance: BENDROFLUMETHIAZIDE
     Dosage: 10 MILLIGRAM, QD
     Route: 065
     Dates: start: 20171103, end: 20171103
  81. BENDROFLUMETHIAZIDE [Suspect]
     Active Substance: BENDROFLUMETHIAZIDE
     Dosage: 3 MILLIGRAM, QD
     Route: 065
     Dates: start: 20171107, end: 201711
  82. BENDROFLUMETHIAZIDE [Suspect]
     Active Substance: BENDROFLUMETHIAZIDE
     Dosage: 1.8 MG/M2 Q_CYCLE / 1.3 MG/M2
     Route: 065
  83. BENDROFLUMETHIAZIDE [Suspect]
     Active Substance: BENDROFLUMETHIAZIDE
     Dosage: 2 MILLIGRAM, QD FOR 4 DAYS
     Route: 065
     Dates: start: 20171107, end: 201711
  84. BENDROFLUMETHIAZIDE [Suspect]
     Active Substance: BENDROFLUMETHIAZIDE
     Dosage: 2 MILLIGRAM, QD
     Route: 065
     Dates: start: 20171110, end: 20171114
  85. BENDROFLUMETHIAZIDE [Suspect]
     Active Substance: BENDROFLUMETHIAZIDE
     Dosage: UNK
     Route: 065
  86. BENDROFLUMETHIAZIDE [Suspect]
     Active Substance: BENDROFLUMETHIAZIDE
     Dosage: 10 MG, QD FOR 4 DAYS
     Route: 065
  87. BENDROFLUMETHIAZIDE [Suspect]
     Active Substance: BENDROFLUMETHIAZIDE
     Dosage: 2.5 MG, QD
     Route: 065
     Dates: start: 20171110, end: 20171114
  88. BENDROFLUMETHIAZIDE [Suspect]
     Active Substance: BENDROFLUMETHIAZIDE
     Dosage: 2.5 MG, QD
     Route: 065
  89. BENDROFLUMETHIAZIDE [Suspect]
     Active Substance: BENDROFLUMETHIAZIDE
     Dosage: 6 MILLIGRAM FOR 4 DAYS
     Route: 065
  90. BENDROFLUMETHIAZIDE [Suspect]
     Active Substance: BENDROFLUMETHIAZIDE
     Dosage: 2.5 MG, QD
     Route: 065
     Dates: start: 20171103, end: 20171103
  91. OMEPRAZOLE [Suspect]
     Active Substance: OMEPRAZOLE
     Indication: Product used for unknown indication
     Dosage: 20 MILLIGRAM, QD (EVERY MORNING)
     Route: 048
  92. OMEPRAZOLE [Suspect]
     Active Substance: OMEPRAZOLE
     Dosage: 10 MILLIGRAM, PRN (AS NEEDED)
     Route: 048
  93. OMEPRAZOLE [Suspect]
     Active Substance: OMEPRAZOLE
     Dosage: 20 MILLIGRAM, QD (EVERY MORNING)
     Route: 048
  94. OMEPRAZOLE [Suspect]
     Active Substance: OMEPRAZOLE
     Dosage: 10 MILLIGRAM, QD
     Route: 048
  95. RAMIPRIL [Suspect]
     Active Substance: RAMIPRIL
     Indication: Product used for unknown indication
     Dosage: 10 MILLIGRAM, QD, ONCE A DAY UNSPESIFIED DOSAGE FORM EVERY MORNING
     Route: 065
  96. RAMIPRIL [Suspect]
     Active Substance: RAMIPRIL
     Dosage: 10 MILLIGRAM, QD, ONCE A DAY UNSPESIFIED DOSAGE FORM EVERY MORNING
     Route: 065
  97. METOCLOPRAMIDE [Concomitant]
     Active Substance: METOCLOPRAMIDE
     Indication: Product used for unknown indication
     Dosage: 20 MILLIGRAM, QD
     Route: 065
  98. BENDROFLUMETHIAZIDE [Concomitant]
     Active Substance: BENDROFLUMETHIAZIDE
     Indication: Product used for unknown indication
     Dosage: 2.5 MILLIGRAM, QD
     Route: 065
  99. SERTRALINE [Concomitant]
     Active Substance: SERTRALINE HYDROCHLORIDE
     Indication: Product used for unknown indication
     Dosage: 50 MILLIGRAM, QD
     Route: 065
  100. OMEPRAZOLE [Concomitant]
     Active Substance: OMEPRAZOLE
     Indication: Product used for unknown indication
     Dosage: 10 MILLIGRAM, QD
     Route: 065

REACTIONS (20)
  - Abnormal behaviour [Recovered/Resolved]
  - Abnormal behaviour [Recovered/Resolved]
  - Disorientation [Recovered/Resolved]
  - Paranoia [Recovered/Resolved]
  - Paranoia [Not Recovered/Not Resolved]
  - Disturbance in social behaviour [Recovered/Resolved]
  - Confusional state [Recovered/Resolved]
  - Confusional state [Recovered/Resolved]
  - Hallucination [Recovered/Resolved]
  - Agitation [Recovered/Resolved]
  - Agitation [Not Recovered/Not Resolved]
  - Emotional distress [Not Recovered/Not Resolved]
  - Chest discomfort [Not Recovered/Not Resolved]
  - Emotional distress [Not Recovered/Not Resolved]
  - Off label use [Unknown]
  - Product use in unapproved indication [Unknown]
  - Medication error [Unknown]
  - Incorrect route of product administration [Unknown]
  - Intentional product misuse [Unknown]
  - Drug abuse [Unknown]

NARRATIVE: CASE EVENT DATE: 20171107
